FAERS Safety Report 13511039 (Version 1)
Quarter: 2017Q2

REPORT INFORMATION
  Report Type: Spontaneous
  Country: TR (occurrence: TR)
  Receive Date: 20170503
  Receipt Date: 20170503
  Transmission Date: 20170830
  Serious: Yes (Other)
  Sender: FDA-Public Use
  Company Number: TR-IMPAX LABORATORIES, INC-2017-IPXL-01204

PATIENT
  Age: 19 Year
  Sex: Female

DRUGS (2)
  1. DIVALPROEX SODIUM ER [Suspect]
     Active Substance: DIVALPROEX SODIUM
     Indication: EPILEPSY
     Dosage: 500 MG, TID
     Route: 065
  2. DIVALPROEX SODIUM ER [Suspect]
     Active Substance: DIVALPROEX SODIUM
     Dosage: 500 MG, BID
     Route: 065

REACTIONS (1)
  - Atrioventricular block [Recovered/Resolved]
